FAERS Safety Report 7730693-2 (Version None)
Quarter: 2011Q3

REPORT INFORMATION
  Report Type: 
  Country: None (occurrence: None)
  Receive Date: 20110906
  Receipt Date: 20110427
  Transmission Date: 20111222
  Serious: Yes (Hospitalization)
  Sender: FDA-Public Use
  Company Number: US-GLAXOSMITHKLINE-A0925648A

PATIENT
  Age: 49 Year
  Sex: Male

DRUGS (1)
  1. AVANDIA [Suspect]
     Indication: DIABETES MELLITUS
     Route: 048

REACTIONS (6)
  - DIALYSIS [None]
  - RENAL FAILURE CHRONIC [None]
  - RENAL SURGERY [None]
  - FLUID RETENTION [None]
  - RENAL FAILURE [None]
  - CARDIAC FAILURE CONGESTIVE [None]
